FAERS Safety Report 26000455 (Version 1)
Quarter: 2025Q4

REPORT INFORMATION
  Report Type: Spontaneous
  Country: PR (occurrence: PR)
  Receive Date: 20251105
  Receipt Date: 20251105
  Transmission Date: 20260117
  Serious: No
  Sender: ANI
  Company Number: PR-ANIPHARMA-2025-PR-000072

PATIENT
  Age: 53 Year
  Sex: Male
  Weight: 124.74 kg

DRUGS (3)
  1. CORTICOTROPIN [Suspect]
     Active Substance: CORTICOTROPIN
     Indication: Gout
     Dosage: 48UNIT 3 CONSECUTIVE DAYS IN A ROW FOR THE FIRST WEEK, THEN WEEK 2 TO 4 WEEK 40UNIT 2 CONSECUTIVE DA
     Route: 030
     Dates: start: 20250627, end: 20250731
  2. ALLOPURINOL [Concomitant]
     Active Substance: ALLOPURINOL
  3. Krystexxa Infusion [Concomitant]

REACTIONS (1)
  - Arthralgia [Unknown]
